FAERS Safety Report 8831312 (Version 2)
Quarter: 2012Q4

REPORT INFORMATION
  Report Type: Report from Study
  Country: FR (occurrence: FR)
  Receive Date: 20121008
  Receipt Date: 20121012
  Transmission Date: 20130627
  Serious: Yes (Death)
  Sender: FDA-Public Use
  Company Number: FR-PFIZER INC-2012245103

PATIENT
  Age: 44 Year
  Sex: Male

DRUGS (1)
  1. CRIZOTINIB [Suspect]
     Dosage: 250 mg, 1x/day
     Dates: start: 20120530

REACTIONS (1)
  - Acute respiratory failure [Fatal]
